FAERS Safety Report 8240240-7 (Version None)
Quarter: 2012Q1

REPORT INFORMATION
  Report Type: 
  Country: None (occurrence: None)
  Receive Date: 20120328
  Receipt Date: 20120319
  Transmission Date: 20120608
  Serious: Yes (Hospitalization)
  Sender: FDA-Public Use
  Company Number: US-ELI_LILLY_AND_COMPANY-US201203005984

PATIENT
  Age: 86 Year
  Sex: Female

DRUGS (13)
  1. VITAMIN D [Concomitant]
     Dosage: 1200 IU, QD
  2. COMBIVENT [Concomitant]
  3. FORTEO [Suspect]
     Indication: OSTEOPOROSIS
     Dosage: 20 UG, QD
     Route: 065
     Dates: start: 20111101
  4. FLECAINIDE ACETATE [Concomitant]
     Dosage: 0.5 DF, BID
  5. WARFARIN SODIUM [Concomitant]
     Dosage: UNK, QD
  6. LOVASTATIN [Concomitant]
     Dosage: 10 MG, QD
  7. ASCORBIC ACID [Concomitant]
     Dosage: 500 MG, QD
  8. CARDIZEM [Concomitant]
     Dosage: 180 MG, UNKNOWN
  9. DEXLANSOPRAZOLE [Concomitant]
     Dosage: 50 MG, UNK
  10. CALCIUM CARBONATE [Concomitant]
     Dosage: 1200 MG, QD
  11. OSTEO BI-FLEX [Concomitant]
  12. MULTI-VITAMINS [Concomitant]
     Dosage: UNK, QD
  13. SPIRONOLACTONE [Concomitant]
     Dosage: 25 MG, UNK

REACTIONS (2)
  - CHRONIC OBSTRUCTIVE PULMONARY DISEASE [None]
  - BRONCHITIS [None]
